FAERS Safety Report 14190281 (Version 1)
Quarter: 2017Q4

REPORT INFORMATION
  Report Type: Spontaneous
  Country: SI (occurrence: SI)
  Receive Date: 20171115
  Receipt Date: 20171115
  Transmission Date: 20180321
  Serious: Yes (Hospitalization, Other)
  Sender: FDA-Public Use
  Company Number: SI-BAYER-2017-215180

PATIENT
  Age: 79 Year
  Sex: Male

DRUGS (26)
  1. OXYGEN. [Concomitant]
     Active Substance: OXYGEN
  2. TAMSULOSIN [Concomitant]
     Active Substance: TAMSULOSIN
     Dosage: 05/0.4
  3. MORPHINE [Concomitant]
     Active Substance: MORPHINE
  4. ANTICOAGULANT CIT PHOS DEX ADENINE [Concomitant]
     Active Substance: CITRIC ACID MONOHYDRATE\DEXTROSE\SODIUM CITRATE\SODIUM PHOSPHATE, MONOBASIC
  5. CLOPIDOGREL [Interacting]
     Active Substance: CLOPIDOGREL BISULFATE
     Dosage: 75 MG, QD
     Dates: start: 2017
  6. TIOTROPIUM BROMIDE [Concomitant]
     Active Substance: TIOTROPIUM BROMIDE
     Dosage: 1 DF, QD
  7. FENOTEROL [Concomitant]
     Active Substance: FENOTEROL
     Route: 051
  8. IPRATROPIUM [Concomitant]
     Active Substance: IPRATROPIUM
     Route: 051
  9. BROMIDES [Concomitant]
     Active Substance: UNSPECIFIED INGREDIENT
     Route: 051
  10. OCTAPLEX [FACT II (PROTHR),FACT IX,FACT VII (PROCONV),FACT X (ST P [Concomitant]
     Dosage: 1500 U, UNK
     Route: 042
  11. RIVAROXABAN [Concomitant]
     Active Substance: RIVAROXABAN
     Dosage: 15 MG, UNK
  12. DUTASTERIDE. [Concomitant]
     Active Substance: DUTASTERIDE
     Dosage: 0.5/0.4UNK
  13. HEPARIN [Interacting]
     Active Substance: HEPARIN SODIUM
     Dosage: UNK
     Dates: start: 2017, end: 2017
  14. MAREVAN [Suspect]
     Active Substance: WARFARIN SODIUM
     Dosage: UNK
     Dates: end: 2017
  15. TORASEMID [Concomitant]
     Active Substance: TORSEMIDE
     Dosage: 10 MG, OM
  16. SPIRONOLACTONE. [Concomitant]
     Active Substance: SPIRONOLACTONE
     Dosage: 25 MG, UNK
  17. ROSUVASTATIN. [Concomitant]
     Active Substance: ROSUVASTATIN
     Dosage: 20 MG, UNK
  18. FUROSEMIDE. [Concomitant]
     Active Substance: FUROSEMIDE
     Route: 051
  19. NITROGLYCERIN. [Concomitant]
     Active Substance: NITROGLYCERIN
  20. KONAKION [Concomitant]
     Active Substance: PHYTONADIONE
     Dosage: 10 MG, UNK
     Route: 042
  21. AMLODIPINE W/PERINDOPRIL [Concomitant]
     Active Substance: AMLODIPINE BESYLATE\PERINDOPRIL
     Dosage: 8/5OM
  22. ASPIRIN PROTECT 100 MG [Suspect]
     Active Substance: ASPIRIN
     Dosage: 100 MG, QD
     Dates: start: 2017, end: 2017
  23. PANTOPRAZOLE [Concomitant]
     Active Substance: PANTOPRAZOLE
     Dosage: 40 MG, OM
  24. HERBAL DIURETIC [Concomitant]
  25. BISOPROLOL [Concomitant]
     Active Substance: BISOPROLOL
     Dosage: 1.25 MG, UNK
  26. WARFARIN [Concomitant]
     Active Substance: WARFARIN

REACTIONS (7)
  - Medical device site haemorrhage [Recovered/Resolved]
  - Syncope [Recovered/Resolved]
  - Bradycardia [Recovered/Resolved]
  - Haematuria [Recovered/Resolved]
  - Labelled drug-drug interaction medication error [None]
  - Drug administration error [None]
  - Ventricular asystole [Recovered/Resolved]
